FAERS Safety Report 9214754 (Version 1)
Quarter: 2013Q2

REPORT INFORMATION
  Report Type: Spontaneous
  Country: GB (occurrence: None)
  Receive Date: 20130403
  Receipt Date: 20130403
  Transmission Date: 20140414
  Serious: Yes (Death, Life-Threatening, Hospitalization)
  Sender: FDA-Public Use
  Company Number: GER/UKI/13/0028820

PATIENT
  Age: 75 Year
  Sex: Male

DRUGS (9)
  1. LAMOTRIGINE (LAMOTRIGINE) [Suspect]
     Indication: CONVULSION
     Dosage: 1 IN 1 D
     Route: 048
     Dates: start: 20130128, end: 20130311
  2. FERROUS GLUCONATE (FERROUS GLUCONATE) [Concomitant]
  3. BISOPROLOL (BISOPROLOL) [Concomitant]
  4. CLOPIDOGREL (CLOPIDOGREL) [Concomitant]
  5. DEPIXOL (FLUPENTIXOL DIHYDROCHLORIDE) [Concomitant]
  6. DIPROBASE (DIPROBASE /01132701/) [Concomitant]
  7. LEVOTHVROXINE (LEVOTHYROXINE) [Concomitant]
  8. RAMINRIL (RAMIPRIL) [Concomitant]
  9. SIMVASTATIN (SIMVASTATIN) [Concomitant]

REACTIONS (6)
  - Pulmonary oedema [None]
  - Skin exfoliation [None]
  - Hypothermia [None]
  - Electrolyte imbalance [None]
  - Left ventricular dysfunction [None]
  - Renal impairment [None]
